FAERS Safety Report 18749374 (Version 2)
Quarter: 2021Q1

REPORT INFORMATION
  Report Type: Report from Study
  Country: ZA (occurrence: ZA)
  Receive Date: 20210116
  Receipt Date: 20210118
  Transmission Date: 20210419
  Serious: Yes (Death, Hospitalization, Other)
  Sender: FDA-Public Use
  Company Number: NVSC2021ZA004869

PATIENT
  Age: 58 Year
  Sex: Male

DRUGS (1)
  1. COSENTYX [Suspect]
     Active Substance: SECUKINUMAB
     Indication: PSORIATIC ARTHROPATHY
     Dosage: 150 MG, QMO
     Route: 065
     Dates: start: 20191117

REACTIONS (7)
  - SARS-CoV-2 test positive [Recovering/Resolving]
  - Psoriatic arthropathy [Not Recovered/Not Resolved]
  - Cough [Recovering/Resolving]
  - Dyspnoea [Fatal]
  - Fatigue [Recovering/Resolving]
  - COVID-19 [Fatal]
  - Oropharyngeal pain [Recovering/Resolving]

NARRATIVE: CASE EVENT DATE: 20201101
